FAERS Safety Report 22590105 (Version 1)
Quarter: 2023Q2

REPORT INFORMATION
  Report Type: Spontaneous
  Country: US (occurrence: None)
  Receive Date: 20230609
  Receipt Date: 20230609
  Transmission Date: 20230722
  Serious: Yes (Hospitalization)
  Sender: FDA-Public Use
  Company Number: None

PATIENT
  Age: 49 Year
  Sex: Male
  Weight: 65.5 kg

DRUGS (3)
  1. DOXERCALCIFEROL [Suspect]
     Active Substance: DOXERCALCIFEROL
     Indication: Hyperparathyroidism secondary
     Dosage: OTHER FREQUENCY : 3 TIMES PER WEEK;?
     Route: 040
     Dates: start: 20230414, end: 20230529
  2. Venofer 100 mg IVP [Concomitant]
     Dates: start: 20230512, end: 20230602
  3. Clonidine HCL 0.2 mg PO [Concomitant]

REACTIONS (3)
  - Unresponsive to stimuli [None]
  - Drug hypersensitivity [None]
  - Blood pressure increased [None]

NARRATIVE: CASE EVENT DATE: 20230529
